FAERS Safety Report 9494143 (Version 1)
Quarter: 2013Q3

REPORT INFORMATION
  Report Type: Report from Study
  Country: AR (occurrence: AR)
  Receive Date: 20130903
  Receipt Date: 20130903
  Transmission Date: 20140515
  Serious: Yes (Other)
  Sender: FDA-Public Use
  Company Number: PHHY2013AR095085

PATIENT
  Sex: Female

DRUGS (1)
  1. ONBREZ [Suspect]
     Indication: CHRONIC OBSTRUCTIVE PULMONARY DISEASE
     Dosage: UNK
     Dates: start: 201304

REACTIONS (4)
  - Dyspnoea [Recovering/Resolving]
  - Wheezing [Recovering/Resolving]
  - Cough [Recovering/Resolving]
  - Condition aggravated [Recovering/Resolving]
